FAERS Safety Report 15352891 (Version 1)
Quarter: 2018Q3

REPORT INFORMATION
  Report Type: Spontaneous
  Country: US (occurrence: US)
  Receive Date: 20180905
  Receipt Date: 20180905
  Transmission Date: 20181010
  Serious: No
  Sender: FDA-Public Use
  Company Number: US-MYLANLABS-2018M1064577

PATIENT
  Sex: Female
  Weight: 68 kg

DRUGS (1)
  1. ZOLPIDEM TARTRATE TABLETS, USP [Suspect]
     Active Substance: ZOLPIDEM TARTRATE
     Indication: INSOMNIA
     Dosage: 5 MG, UNK
     Route: 048

REACTIONS (3)
  - Product substitution issue [Unknown]
  - Wrong technique in product usage process [Unknown]
  - Product availability issue [Unknown]
